FAERS Safety Report 7267449-3 (Version None)
Quarter: 2011Q1

REPORT INFORMATION
  Report Type: 
  Country: None (occurrence: None)
  Receive Date: 20110119
  Receipt Date: 20110104
  Transmission Date: 20110831
  Serious: Yes (Hospitalization)
  Sender: FDA-Public Use
  Company Number: DSA_44488_2010

PATIENT
  Age: 55 Year
  Sex: Female

DRUGS (6)
  1. TILDIEM (TILDIEM CR-DILTIAZEM HYDROCHLORIDE) 90 MG (NOT SPECIFIED) [Suspect]
     Indication: MYOCARDIAL INFARCTION
     Dosage: (DF ORAL)
     Route: 048
     Dates: start: 20101001, end: 20101020
  2. ALISKIREN [Concomitant]
  3. HYDROCHLOROTHIAZIDE [Concomitant]
  4. PANTOPRAZOL /01263202/ [Concomitant]
  5. ROSUVASTATINE [Concomitant]
  6. ACETYLSALICYLIC ACID [Concomitant]

REACTIONS (2)
  - TOXIC SKIN ERUPTION [None]
  - ACUTE FEBRILE NEUTROPHILIC DERMATOSIS [None]
